FAERS Safety Report 8493967 (Version 3)
Quarter: 2013Q1

REPORT INFORMATION
  Report Type: Report from Study
  Country: US (occurrence: US)
  Receive Date: 20120404
  Receipt Date: 20130125
  Transmission Date: 20140127
  Serious: Yes (Hospitalization)
  Sender: FDA-Public Use
  Company Number: US-UCBSA-8053521

PATIENT
  Age: 28 Year
  Sex: Female
  Weight: 52.4 kg

DRUGS (2)
  1. CIMZIA [Suspect]
     Indication: CROHN^S DISEASE
     Route: 058
     Dates: start: 20081201
  2. PREDNISONE [Concomitant]
     Indication: CROHN^S DISEASE
     Dates: start: 200410

REACTIONS (1)
  - Influenza [Recovered/Resolved]
